FAERS Safety Report 26199725 (Version 1)
Quarter: 2025Q4

REPORT INFORMATION
  Report Type: Spontaneous
  Country: US (occurrence: US)
  Receive Date: 20251225
  Receipt Date: 20251225
  Transmission Date: 20260118
  Serious: Yes (Death, Life-Threatening, Hospitalization)
  Sender: ACCORD
  Company Number: US-MLMSERVICE-20251204-PI740166-00232-1

PATIENT
  Age: 60 Year
  Sex: Female

DRUGS (3)
  1. MYCOPHENOLATE MOFETIL [Suspect]
     Active Substance: MYCOPHENOLATE MOFETIL
     Indication: Autoimmune myocarditis
  2. PREDNISONE [Suspect]
     Active Substance: PREDNISONE
     Indication: Autoimmune myocarditis
     Dosage: HIGH DOSE
  3. SULFAMETHOXAZOLE\TRIMETHOPRIM [Concomitant]
     Active Substance: SULFAMETHOXAZOLE\TRIMETHOPRIM
     Indication: Prophylaxis

REACTIONS (9)
  - Central nervous system lesion [Fatal]
  - Vasogenic cerebral oedema [Fatal]
  - Pulmonary mass [Fatal]
  - Lung consolidation [Fatal]
  - Hydrocephalus [Fatal]
  - Shock [Fatal]
  - Ventricular tachycardia [Fatal]
  - Disseminated aspergillosis [Fatal]
  - Off label use [Unknown]
